FAERS Safety Report 9703818 (Version 1)
Quarter: 2013Q4

REPORT INFORMATION
  Report Type: Spontaneous
  Country: US (occurrence: None)
  Receive Date: 20131121
  Receipt Date: 20131121
  Transmission Date: 20140711
  Serious: Yes (Other)
  Sender: FDA-Public Use
  Company Number: None

PATIENT
  Age: 60 Year
  Sex: Female
  Weight: 74.84 kg

DRUGS (1)
  1. LEVOTHYROXINE [Suspect]
     Indication: THYROID DISORDER
     Dosage: 1M-F  1/2 SAT/SUN  ONCE DAILY  TAKEN BY MOUTH?DATES OF USE:  10/18/2013 - 05/10/2014??
     Route: 048
     Dates: start: 20131018

REACTIONS (2)
  - Oedema mouth [None]
  - Tongue oedema [None]
